FAERS Safety Report 8964565 (Version 1)
Quarter: 2012Q4

REPORT INFORMATION
  Report Type: Report from Study
  Country: GB (occurrence: GB)
  Receive Date: 20121214
  Receipt Date: 20121214
  Transmission Date: 20130627
  Serious: Yes (Other)
  Sender: FDA-Public Use
  Company Number: GB-JNJFOC-20121202309

PATIENT
  Age: 66 None
  Sex: Male

DRUGS (7)
  1. SIMPONI [Suspect]
     Indication: PRODUCT USED FOR UNKNOWN INDICATION
     Route: 058
  2. SIMPONI [Suspect]
     Indication: PRODUCT USED FOR UNKNOWN INDICATION
     Route: 058
     Dates: start: 20121129
  3. METHOTREXATE [Concomitant]
  4. FOLIC ACID [Concomitant]
  5. NAPROXEN [Concomitant]
  6. PARACETAMOL [Concomitant]
  7. TRAMADOL [Concomitant]

REACTIONS (4)
  - Pleurisy [Recovered/Resolved]
  - Fall [Unknown]
  - Headache [Recovered/Resolved]
  - Contusion [Unknown]
